FAERS Safety Report 9390439 (Version 1)
Quarter: 2013Q3

REPORT INFORMATION
  Report Type: Report from Study
  Country: FR (occurrence: FR)
  Receive Date: 20130709
  Receipt Date: 20130709
  Transmission Date: 20140515
  Serious: Yes (Hospitalization)
  Sender: FDA-Public Use
  Company Number: FR-ROCHE-1245379

PATIENT
  Age: 56 Year
  Sex: Male
  Weight: 62 kg

DRUGS (142)
  1. TOCILIZUMAB [Suspect]
     Indication: RHEUMATOID ARTHRITIS
     Dosage: 8 MG/KG
     Route: 041
     Dates: start: 20110513, end: 20121107
  2. TOCILIZUMAB [Suspect]
     Route: 041
     Dates: start: 20110617
  3. TOCILIZUMAB [Suspect]
     Route: 041
     Dates: start: 20110720
  4. TOCILIZUMAB [Suspect]
     Route: 041
     Dates: start: 20110914
  5. TOCILIZUMAB [Suspect]
     Route: 041
     Dates: start: 20111012
  6. TOCILIZUMAB [Suspect]
     Route: 041
     Dates: start: 20111122
  7. TOCILIZUMAB [Suspect]
     Route: 041
     Dates: start: 20111223
  8. TOCILIZUMAB [Suspect]
     Route: 041
     Dates: start: 20120131
  9. TOCILIZUMAB [Suspect]
     Route: 041
     Dates: start: 20120228
  10. TOCILIZUMAB [Suspect]
     Route: 041
     Dates: start: 20120327
  11. TOCILIZUMAB [Suspect]
     Route: 041
     Dates: start: 20120426
  12. TOCILIZUMAB [Suspect]
     Route: 041
     Dates: start: 20120522
  13. TOCILIZUMAB [Suspect]
     Route: 041
     Dates: start: 20120620
  14. TOCILIZUMAB [Suspect]
     Route: 041
     Dates: start: 20120731
  15. TOCILIZUMAB [Suspect]
     Route: 041
     Dates: start: 20121009
  16. TOCILIZUMAB [Suspect]
     Route: 041
     Dates: start: 20121107
  17. TOCILIZUMAB [Suspect]
     Route: 041
     Dates: start: 20121206
  18. TOCILIZUMAB [Suspect]
     Route: 041
     Dates: start: 20130103
  19. TOCILIZUMAB [Suspect]
     Route: 041
     Dates: start: 20130205
  20. TOCILIZUMAB [Suspect]
     Route: 041
     Dates: start: 20130422
  21. CORTANCYL [Concomitant]
     Route: 065
     Dates: start: 200901
  22. CORTANCYL [Concomitant]
     Route: 065
     Dates: start: 20110513
  23. CORTANCYL [Concomitant]
     Route: 065
     Dates: start: 20110617
  24. CORTANCYL [Concomitant]
     Route: 065
     Dates: start: 20110720
  25. CORTANCYL [Concomitant]
     Route: 065
     Dates: start: 20110914
  26. CORTANCYL [Concomitant]
     Route: 065
     Dates: start: 20111012
  27. CORTANCYL [Concomitant]
     Route: 065
     Dates: start: 20111122
  28. CORTANCYL [Concomitant]
     Route: 065
     Dates: start: 20111223
  29. CORTANCYL [Concomitant]
     Route: 065
     Dates: start: 20120131
  30. CORTANCYL [Concomitant]
     Route: 065
     Dates: start: 20120228
  31. CORTANCYL [Concomitant]
     Route: 065
     Dates: start: 20120327
  32. CORTANCYL [Concomitant]
     Route: 065
     Dates: start: 20120426
  33. CORTANCYL [Concomitant]
     Route: 065
     Dates: start: 20120522
  34. CORTANCYL [Concomitant]
     Route: 065
     Dates: start: 20120620
  35. CORTANCYL [Concomitant]
     Route: 065
     Dates: start: 20120731
  36. CORTANCYL [Concomitant]
     Route: 065
     Dates: start: 20121009
  37. CORTANCYL [Concomitant]
     Route: 065
     Dates: start: 20121107
  38. CORTANCYL [Concomitant]
     Route: 065
     Dates: start: 20121206
  39. CORTANCYL [Concomitant]
     Route: 065
     Dates: start: 20130103
  40. CORTANCYL [Concomitant]
     Route: 065
     Dates: start: 20130205
  41. CORTANCYL [Concomitant]
     Route: 065
     Dates: start: 20130422
  42. PREVISCAN (FRANCE) [Concomitant]
     Route: 065
     Dates: start: 20110617
  43. PREVISCAN (FRANCE) [Concomitant]
     Route: 065
     Dates: start: 20110720
  44. PREVISCAN (FRANCE) [Concomitant]
     Route: 065
     Dates: start: 20110914
  45. PREVISCAN (FRANCE) [Concomitant]
     Route: 065
     Dates: start: 20111012
  46. PREVISCAN (FRANCE) [Concomitant]
     Route: 065
     Dates: start: 20111122
  47. METHOTREXATE [Concomitant]
     Route: 065
     Dates: start: 20110513
  48. METHOTREXATE [Concomitant]
     Route: 065
     Dates: start: 20110617
  49. METHOTREXATE [Concomitant]
     Route: 065
     Dates: start: 20110720
  50. METHOTREXATE [Concomitant]
     Route: 065
     Dates: start: 20110914
  51. METHOTREXATE [Concomitant]
     Route: 065
     Dates: start: 20111012
  52. METHOTREXATE [Concomitant]
     Route: 065
     Dates: start: 20111122
  53. METHOTREXATE [Concomitant]
     Route: 065
     Dates: start: 20111223
  54. METHOTREXATE [Concomitant]
     Route: 065
     Dates: start: 20120131
  55. METHOTREXATE [Concomitant]
     Route: 065
     Dates: start: 20120228
  56. METHOTREXATE [Concomitant]
     Route: 065
     Dates: start: 20120327
  57. METHOTREXATE [Concomitant]
     Route: 065
     Dates: start: 20120426
  58. METHOTREXATE [Concomitant]
     Route: 065
     Dates: start: 20120522
  59. METHOTREXATE [Concomitant]
     Route: 065
     Dates: start: 20120620
  60. METHOTREXATE [Concomitant]
     Route: 065
     Dates: start: 20120731
  61. METHOTREXATE [Concomitant]
     Route: 065
     Dates: start: 20121009
  62. METHOTREXATE [Concomitant]
     Route: 065
     Dates: start: 20121107
  63. METHOTREXATE [Concomitant]
     Route: 065
     Dates: start: 20121206
  64. METHOTREXATE [Concomitant]
     Route: 065
     Dates: start: 20130103
  65. METHOTREXATE [Concomitant]
     Route: 065
     Dates: start: 20130205
  66. METHOTREXATE [Concomitant]
     Route: 065
     Dates: start: 20130422
  67. LASILIX [Concomitant]
     Route: 065
     Dates: start: 20110617
  68. LASILIX [Concomitant]
     Route: 065
     Dates: start: 20110720
  69. LASILIX [Concomitant]
     Route: 065
     Dates: start: 20110914
  70. LASILIX [Concomitant]
     Route: 065
     Dates: start: 20111012
  71. LASILIX [Concomitant]
     Route: 065
     Dates: start: 20111122
  72. LASILIX [Concomitant]
     Route: 065
     Dates: start: 20111223
  73. LASILIX [Concomitant]
     Route: 065
     Dates: start: 20120131
  74. LASILIX [Concomitant]
     Route: 065
     Dates: start: 20120228
  75. LASILIX [Concomitant]
     Route: 065
     Dates: start: 20120327
  76. LASILIX [Concomitant]
     Route: 065
     Dates: start: 20120426
  77. LASILIX [Concomitant]
     Route: 065
     Dates: start: 20120522
  78. LASILIX [Concomitant]
     Route: 065
     Dates: start: 20120620
  79. LASILIX [Concomitant]
     Route: 065
     Dates: start: 20120731
  80. LASILIX [Concomitant]
     Route: 065
     Dates: start: 20121009
  81. LASILIX [Concomitant]
     Route: 065
     Dates: start: 20121107
  82. LASILIX [Concomitant]
     Route: 065
     Dates: start: 20121206
  83. LASILIX [Concomitant]
     Route: 065
     Dates: start: 20130103
  84. LASILIX [Concomitant]
     Route: 065
     Dates: start: 20130205
  85. LASILIX [Concomitant]
     Route: 065
     Dates: start: 20130422
  86. CYMBALTA [Concomitant]
     Route: 065
     Dates: start: 20110617
  87. CYMBALTA [Concomitant]
     Route: 065
     Dates: start: 20110720
  88. CYMBALTA [Concomitant]
     Route: 065
     Dates: start: 20110914
  89. CYMBALTA [Concomitant]
     Route: 065
     Dates: start: 20111012
  90. CYMBALTA [Concomitant]
     Route: 065
     Dates: start: 20111122
  91. CYMBALTA [Concomitant]
     Route: 065
     Dates: start: 20111223
  92. CYMBALTA [Concomitant]
     Route: 065
     Dates: start: 20120131
  93. CYMBALTA [Concomitant]
     Route: 065
     Dates: start: 20120228
  94. CYMBALTA [Concomitant]
     Route: 065
     Dates: start: 20120327
  95. CYMBALTA [Concomitant]
     Route: 065
     Dates: start: 20120426
  96. CYMBALTA [Concomitant]
     Route: 065
     Dates: start: 20120522
  97. CYMBALTA [Concomitant]
     Route: 065
     Dates: start: 20120620
  98. CYMBALTA [Concomitant]
     Route: 065
     Dates: start: 20120731
  99. CYMBALTA [Concomitant]
     Route: 065
     Dates: start: 20121009
  100. CYMBALTA [Concomitant]
     Route: 065
     Dates: start: 20121107
  101. CYMBALTA [Concomitant]
     Route: 065
     Dates: start: 20121206
  102. CYMBALTA [Concomitant]
     Route: 065
     Dates: start: 20130103
  103. CYMBALTA [Concomitant]
     Route: 065
     Dates: start: 20130205
  104. CYMBALTA [Concomitant]
     Route: 065
     Dates: start: 20130422
  105. ATENOLOL [Concomitant]
     Route: 065
     Dates: start: 20110617
  106. ATENOLOL [Concomitant]
     Route: 065
     Dates: start: 20110720
  107. ATENOLOL [Concomitant]
     Route: 065
     Dates: start: 20110914
  108. ATENOLOL [Concomitant]
     Route: 065
     Dates: start: 20111012
  109. ATENOLOL [Concomitant]
     Route: 065
     Dates: start: 20111122
  110. ATENOLOL [Concomitant]
     Route: 065
     Dates: start: 20111223
  111. ATENOLOL [Concomitant]
     Route: 065
     Dates: start: 20120131
  112. ATENOLOL [Concomitant]
     Route: 065
     Dates: start: 20120228
  113. ATENOLOL [Concomitant]
     Route: 065
     Dates: start: 20120327
  114. ATENOLOL [Concomitant]
     Route: 065
     Dates: start: 20120426
  115. ATENOLOL [Concomitant]
     Route: 065
     Dates: start: 20120522
  116. ATENOLOL [Concomitant]
     Route: 065
     Dates: start: 20120620
  117. ATENOLOL [Concomitant]
     Route: 065
     Dates: start: 20120731
  118. ATENOLOL [Concomitant]
     Route: 065
     Dates: start: 20121009
  119. ATENOLOL [Concomitant]
     Route: 065
     Dates: start: 20121107
  120. ATENOLOL [Concomitant]
     Route: 065
     Dates: start: 20121206
  121. ATENOLOL [Concomitant]
     Route: 065
     Dates: start: 20130103
  122. ATENOLOL [Concomitant]
     Route: 065
     Dates: start: 20130205
  123. ATENOLOL [Concomitant]
     Route: 065
     Dates: start: 20130422
  124. SPECIAFOLDINE [Concomitant]
     Route: 065
     Dates: start: 20110617
  125. SPECIAFOLDINE [Concomitant]
     Route: 065
     Dates: start: 20110720
  126. SPECIAFOLDINE [Concomitant]
     Route: 065
     Dates: start: 20110914
  127. SPECIAFOLDINE [Concomitant]
     Route: 065
     Dates: start: 20111012
  128. SPECIAFOLDINE [Concomitant]
     Route: 065
     Dates: start: 20111122
  129. SPECIAFOLDINE [Concomitant]
     Route: 065
     Dates: start: 20111223
  130. SPECIAFOLDINE [Concomitant]
     Route: 065
     Dates: start: 20120131
  131. SPECIAFOLDINE [Concomitant]
     Route: 065
     Dates: start: 20120228
  132. SPECIAFOLDINE [Concomitant]
     Route: 065
     Dates: start: 20120327
  133. SPECIAFOLDINE [Concomitant]
     Route: 065
     Dates: start: 20120426
  134. SPECIAFOLDINE [Concomitant]
     Route: 065
     Dates: start: 20120522
  135. SPECIAFOLDINE [Concomitant]
     Route: 065
     Dates: start: 20120620
  136. SPECIAFOLDINE [Concomitant]
     Route: 065
     Dates: start: 20120731
  137. SPECIAFOLDINE [Concomitant]
     Route: 065
     Dates: start: 20121009
  138. SPECIAFOLDINE [Concomitant]
     Route: 065
     Dates: start: 20121107
  139. SPECIAFOLDINE [Concomitant]
     Route: 065
     Dates: start: 20121206
  140. SPECIAFOLDINE [Concomitant]
     Route: 065
     Dates: start: 20130103
  141. SPECIAFOLDINE [Concomitant]
     Route: 065
     Dates: start: 20130205
  142. SPECIAFOLDINE [Concomitant]
     Route: 065
     Dates: start: 20130422

REACTIONS (4)
  - Arthropathy [Recovered/Resolved]
  - Sinusitis [Recovered/Resolved]
  - Cough [Recovered/Resolved]
  - Rhinorrhoea [Recovered/Resolved]
